FAERS Safety Report 7620316-5 (Version None)
Quarter: 2011Q3

REPORT INFORMATION
  Report Type: 
  Country: None (occurrence: None)
  Receive Date: 20110719
  Receipt Date: 20110707
  Transmission Date: 20111222
  Serious: Yes (Other)
  Sender: FDA-Public Use
  Company Number: PHHY2011DE60919

PATIENT
  Age: 1 Day
  Sex: Female

DRUGS (2)
  1. VALPROIC ACID [Suspect]
  2. SULTIAME [Concomitant]

REACTIONS (7)
  - BLOOD CREATINE PHOSPHOKINASE INCREASED [None]
  - LIVER FUNCTION TEST ABNORMAL [None]
  - RHABDOMYOLYSIS [None]
  - HYPOTONIA NEONATAL [None]
  - AMMONIA INCREASED [None]
  - RESPIRATORY FAILURE [None]
  - MYOGLOBIN BLOOD INCREASED [None]
